FAERS Safety Report 7349387-0 (Version None)
Quarter: 2011Q1

REPORT INFORMATION
  Report Type: 
  Country: None (occurrence: None)
  Receive Date: 20110314
  Receipt Date: 20100616
  Transmission Date: 20110831
  Serious: No
  Sender: FDA-Public Use
  Company Number: US-ABBOTT-10P-163-0652881-00

PATIENT
  Sex: Female
  Weight: 96.248 kg

DRUGS (7)
  1. GEODON [Concomitant]
     Indication: PRODUCT USED FOR UNKNOWN INDICATION
  2. DEPAKOTE [Suspect]
     Indication: BIPOLAR DISORDER
     Route: 048
  3. DEPAKOTE [Suspect]
     Indication: SCHIZOAFFECTIVE DISORDER
  4. DEPAKOTE ER [Suspect]
     Indication: BIPOLAR DISORDER
  5. COGENTIN [Concomitant]
     Indication: TREMOR
  6. HALDOL [Concomitant]
     Indication: NERVOUSNESS
     Route: 050
  7. DEPAKOTE ER [Suspect]
     Indication: SCHIZOAFFECTIVE DISORDER

REACTIONS (7)
  - VISION BLURRED [None]
  - TREMOR [None]
  - ALOPECIA [None]
  - TRICHORRHEXIS [None]
  - NERVOUSNESS [None]
  - GINGIVAL ATROPHY [None]
  - BIPOLAR DISORDER [None]
